FAERS Safety Report 8295201-9 (Version None)
Quarter: 2012Q2

REPORT INFORMATION
  Report Type: 
  Country: None (occurrence: None)
  Receive Date: 20120418
  Receipt Date: 20120415
  Transmission Date: 20120825
  Serious: Yes (Other)
  Sender: FDA-Public Use
  Company Number: US-ROCHE-1059955

PATIENT
  Sex: Female

DRUGS (3)
  1. RIBAVIRIN [Suspect]
     Indication: HEPATITIS C
     Route: 048
     Dates: start: 20120405
  2. PEGASYS [Suspect]
     Indication: HEPATITIS C
     Route: 058
     Dates: start: 20120405
  3. INCIVEK [Suspect]
     Indication: HEPATITIS C
     Dates: start: 20120405

REACTIONS (3)
  - INSOMNIA [None]
  - VERTIGO [None]
  - DEPRESSED LEVEL OF CONSCIOUSNESS [None]
